FAERS Safety Report 22315594 (Version 2)
Quarter: 2023Q2

REPORT INFORMATION
  Report Type: Other
  Country: TN (occurrence: None)
  Receive Date: 20230512
  Receipt Date: 20230615
  Transmission Date: 20230721
  Serious: Yes (Other)
  Sender: FDA-Public Use
  Company Number: TN-ROCHE-3348999

PATIENT
  Age: 42 Year
  Sex: Female

DRUGS (1)
  1. TOCILIZUMAB [Suspect]
     Active Substance: TOCILIZUMAB
     Indication: Still^s disease
     Route: 042

REACTIONS (1)
  - Haemophagocytic lymphohistiocytosis [Recovering/Resolving]
